FAERS Safety Report 9201851 (Version 2)
Quarter: 2013Q2

REPORT INFORMATION
  Report Type: Spontaneous
  Country: IT (occurrence: IT)
  Receive Date: 20130401
  Receipt Date: 20130409
  Transmission Date: 20140414
  Serious: Yes (Hospitalization)
  Sender: FDA-Public Use
  Company Number: IT-ELI_LILLY_AND_COMPANY-IT201303007685

PATIENT
  Age: 73 Year
  Sex: Male

DRUGS (3)
  1. ALIMTA [Suspect]
     Indication: NON-SMALL CELL LUNG CANCER
     Dosage: 900 MG, UNK
     Route: 042
     Dates: start: 20130222, end: 20130319
  2. VITAMIN B12 [Concomitant]
  3. FOLIC ACID [Concomitant]

REACTIONS (2)
  - Acute coronary syndrome [Recovered/Resolved]
  - Anaemia [Recovered/Resolved]
